FAERS Safety Report 5811914-X (Version None)
Quarter: 2008Q3

REPORT INFORMATION
  Report Type: 
  Country: None (occurrence: None)
  Receive Date: 20080716
  Receipt Date: 20080708
  Transmission Date: 20090109
  Serious: Yes (Death)
  Sender: FDA-Public Use
  Company Number: ZA-ROCHE-574672

PATIENT
  Age: 18 Year
  Sex: Male

DRUGS (1)
  1. ISOTRETINOIN [Suspect]
     Indication: ACNE
     Dosage: DOSING REGIMEN REPORTED AS DAILY
     Route: 065

REACTIONS (1)
  - OPERATIVE HAEMORRHAGE [None]
